FAERS Safety Report 5724723-7 (Version None)
Quarter: 2008Q2

REPORT INFORMATION
  Report Type: 
  Country: None (occurrence: None)
  Receive Date: 20080428
  Receipt Date: 20080415
  Transmission Date: 20081010
  Serious: Yes (Hospitalization)
  Sender: FDA-Public Use
  Company Number: CAP08000122

PATIENT
  Sex: Female

DRUGS (5)
  1. ACTONEL [Suspect]
     Indication: OSTEOPENIA
     Dosage: 35 MG ONCE WEEKLY, ORAL
     Route: 048
     Dates: start: 20030101, end: 20070101
  2. ACTONEL [Suspect]
     Indication: OSTEOPENIA
     Dosage: 35 MG ONCE WEEKLY, ORAL
     Route: 048
     Dates: start: 20070301
  3. DYAZIDE [Concomitant]
  4. ZESTRIL [Concomitant]
  5. LOSEC /00661201/ (OMEPRAZOLE) [Concomitant]

REACTIONS (2)
  - HIP ARTHROPLASTY [None]
  - THYROID CANCER [None]
